FAERS Safety Report 16578122 (Version 2)
Quarter: 2019Q3

REPORT INFORMATION
  Report Type: Spontaneous
  Country: FI (occurrence: FI)
  Receive Date: 20190716
  Receipt Date: 20190718
  Transmission Date: 20191004
  Serious: Yes (Other)
  Sender: FDA-Public Use
  Company Number: FI-ORION CORPORATION ORION PHARMA-DIUR2019-0001

PATIENT
  Age: 80 Year
  Sex: Female

DRUGS (7)
  1. TREXAN [Interacting]
     Active Substance: METHOTREXATE SODIUM
     Indication: RHEUMATOID ARTHRITIS
     Dosage: STRENGTH: 2.5 MG
     Route: 048
     Dates: start: 2001
  2. CARDACE [Interacting]
     Active Substance: RAMIPRIL
     Dosage: STRENGTH: 2.5.MG, ON ALTERNATING DAYS WITH DIUREX MITE
     Route: 065
  3. OXIKLORIN [Suspect]
     Active Substance: HYDROXYCHLOROQUINE SULFATE
     Indication: RHEUMATOID ARTHRITIS
     Dosage: STRENGTH: 300 MG
     Route: 048
     Dates: start: 2001
  4. DIUREX MITE [Interacting]
     Active Substance: AMILORIDE HYDROCHLORIDE\HYDROCHLOROTHIAZIDE
     Dosage: ON ALTERNATING DAYS WITH CARDACE
     Route: 048
     Dates: start: 201904
  5. PRIMASPAN [Suspect]
     Active Substance: ASPIRIN
     Indication: PRODUCT USED FOR UNKNOWN INDICATION
     Dosage: IN THE MORNING, STRENGTH: 100 MG
     Route: 048
     Dates: start: 2013
  6. CARDACE [Interacting]
     Active Substance: RAMIPRIL
     Indication: PRODUCT USED FOR UNKNOWN INDICATION
     Dosage: STRENGTH: 2.5.MG
     Route: 065
  7. DIUREX MITE [Suspect]
     Active Substance: AMILORIDE HYDROCHLORIDE\HYDROCHLOROTHIAZIDE
     Indication: CARDIAC DISORDER
     Route: 048
     Dates: start: 20190410, end: 201904

REACTIONS (8)
  - Cerebral infarction [Unknown]
  - Dizziness [Recovered/Resolved]
  - Blood pressure decreased [Recovered/Resolved]
  - Drug interaction [Unknown]
  - Rheumatoid arthritis [Recovered/Resolved]
  - Labelled drug-drug interaction medication error [Unknown]
  - Pain in extremity [Recovered/Resolved]
  - Aortic valve stenosis [Unknown]

NARRATIVE: CASE EVENT DATE: 20190410
